FAERS Safety Report 8464479-0 (Version None)
Quarter: 2012Q2

REPORT INFORMATION
  Report Type: 
  Country: None (occurrence: None)
  Receive Date: 20120626
  Receipt Date: 20120612
  Transmission Date: 20120825
  Serious: Yes (Other)
  Sender: FDA-Public Use
  Company Number: IN-RANBAXY-2012RR-57136

PATIENT
  Age: 64 Year
  Sex: Male

DRUGS (2)
  1. SERTRALINE HYDROCHLORIDE [Suspect]
     Indication: PSEUDODEMENTIA
     Dosage: 25 MG/DAY
     Route: 048
  2. SERTRALINE HYDROCHLORIDE [Suspect]
     Dosage: 50 MG/DAY
     Route: 048

REACTIONS (2)
  - HYPONATRAEMIA [None]
  - GRAND MAL CONVULSION [None]
